FAERS Safety Report 8031332-6 (Version None)
Quarter: 2012Q1

REPORT INFORMATION
  Report Type: 
  Country: None (occurrence: None)
  Receive Date: 20120109
  Receipt Date: 20111229
  Transmission Date: 20120608
  Serious: Yes (Hospitalization)
  Sender: FDA-Public Use
  Company Number: FR-GLAXOSMITHKLINE-B0772181A

PATIENT
  Sex: Male
  Weight: 72 kg

DRUGS (11)
  1. BACTRIM DS [Concomitant]
     Dosage: 1TAB THREE TIMES PER WEEK
     Route: 048
  2. ZOFRAN [Suspect]
     Indication: PREMEDICATION
     Dosage: 1UNIT CYCLIC
     Route: 048
     Dates: start: 20111122
  3. PREDNISONE TAB [Concomitant]
     Dosage: 60MG PER DAY
     Dates: start: 20111122, end: 20111201
  4. MATULANE [Suspect]
     Indication: HODGKIN'S DISEASE STAGE IV
     Dosage: 200MG CYCLIC
     Route: 048
     Dates: start: 20111122
  5. CYCLOPHOSPHAMIDE [Concomitant]
     Dates: start: 20111122, end: 20111122
  6. DOXORUBICIN HCL [Concomitant]
     Dates: start: 20111122, end: 20111122
  7. ETOPOSIDE [Suspect]
     Indication: HODGKIN'S DISEASE STAGE IV
     Dosage: 200MGM2 CYCLIC
     Route: 042
     Dates: start: 20111122
  8. BLEOMYCIN SULFATE [Concomitant]
     Dates: start: 20111129, end: 20111129
  9. VINCRISTINE [Concomitant]
     Dates: start: 20111129, end: 20111129
  10. MESNA [Concomitant]
     Dates: start: 20111122, end: 20111122
  11. VALACYCLOVIR HYDROCHLORIDE [Concomitant]

REACTIONS (2)
  - RASH MORBILLIFORM [None]
  - PYREXIA [None]
